FAERS Safety Report 19591383 (Version 1)
Quarter: 2021Q3

REPORT INFORMATION
  Report Type: Other
  Country: US (occurrence: US)
  Receive Date: 20210721
  Receipt Date: 20210721
  Transmission Date: 20211014
  Serious: No
  Sender: FDA-Public Use
  Company Number: US-ROCHE-2872138

PATIENT
  Age: 42 Year
  Sex: Female
  Weight: 84.9 kg

DRUGS (2)
  1. OCREVUS [Suspect]
     Active Substance: OCRELIZUMAB
     Indication: PRIMARY PROGRESSIVE MULTIPLE SCLEROSIS
     Route: 042
  2. OCREVUS [Suspect]
     Active Substance: OCRELIZUMAB
     Route: 042

REACTIONS (2)
  - Visual impairment [Not Recovered/Not Resolved]
  - COVID-19 [Not Recovered/Not Resolved]

NARRATIVE: CASE EVENT DATE: 20210707
